FAERS Safety Report 21199543 (Version 11)
Quarter: 2023Q2

REPORT INFORMATION
  Report Type: Report from Study
  Country: US (occurrence: None)
  Receive Date: 20220811
  Receipt Date: 20230427
  Transmission Date: 20230722
  Serious: Yes (Hospitalization)
  Sender: FDA-Public Use
  Company Number: US-ROCHE-3135211

PATIENT
  Age: 75 Year
  Sex: Female
  Weight: 79.8 kg

DRUGS (24)
  1. PERTUZUMAB\TRASTUZUMAB [Suspect]
     Active Substance: PERTUZUMAB\TRASTUZUMAB
     Indication: Gallbladder cancer metastatic
     Dosage: ON 14/JUN/2022 AT 11:27 AM, DOSE LAST STUDY DRUG PERTUZUMAB/TRASTUZUMAB ADMIN PRIOR AE/SAE IS 10 MG
     Route: 058
     Dates: start: 20220503
  2. PERTUZUMAB\TRASTUZUMAB [Suspect]
     Active Substance: PERTUZUMAB\TRASTUZUMAB
     Dosage: DATE OF LAST DOSE PRIOR TO AE: 14/JUN/2022
     Route: 058
     Dates: start: 20220503, end: 20220707
  3. PERTUZUMAB\TRASTUZUMAB [Suspect]
     Active Substance: PERTUZUMAB\TRASTUZUMAB
     Dosage: DATE OF LAST DOSE PRIOR TO AE: 14/JUN/2022
     Route: 058
     Dates: start: 20220726
  4. CAPECITABINE [Suspect]
     Active Substance: CAPECITABINE
     Indication: Gallbladder cancer metastatic
     Dosage: ON 28/JUN/2022, DOSE LAST STUDY DRUG ADMIN PRIOR AE/SAE IS 1500 MG
     Route: 048
     Dates: start: 20220503, end: 20220707
  5. CAPECITABINE [Suspect]
     Active Substance: CAPECITABINE
     Dosage: ON 28/JUN/2022, DOSE LAST STUDY DRUG ADMIN PRIOR AE/SAE IS 1500 MG
     Route: 048
     Dates: start: 20220726
  6. TRAMADOL [Concomitant]
     Active Substance: TRAMADOL
     Indication: Herpes zoster
     Route: 048
     Dates: start: 20220502
  7. ACETAMINOPHEN [Concomitant]
     Active Substance: ACETAMINOPHEN
     Indication: Pain
     Dosage: 325MG TWO TABLETS AT A TIME
     Route: 048
  8. ACETAMINOPHEN [Concomitant]
     Active Substance: ACETAMINOPHEN
     Indication: Pyrexia
     Route: 048
     Dates: start: 20220630, end: 20220708
  9. ACETAMINOPHEN [Concomitant]
     Active Substance: ACETAMINOPHEN
     Indication: Muscle spasms
     Route: 048
     Dates: start: 20220701, end: 20220706
  10. ZOFRAN [Concomitant]
     Active Substance: ONDANSETRON HYDROCHLORIDE
     Indication: Nausea
     Route: 048
  11. ZOFRAN [Concomitant]
     Active Substance: ONDANSETRON HYDROCHLORIDE
     Indication: Vomiting
  12. RIFAXIMIN [Concomitant]
     Active Substance: RIFAXIMIN
     Route: 048
  13. COMPAZINE [Concomitant]
     Active Substance: PROCHLORPERAZINE MALEATE
     Dates: start: 20220627
  14. IMODIUM [Concomitant]
     Active Substance: LOPERAMIDE HYDROCHLORIDE
     Dates: start: 20220605
  15. BENADRYL (ARGENTINA) [Concomitant]
     Indication: Herpes zoster
     Route: 048
     Dates: start: 20220630, end: 20220708
  16. VITAMIN D3 [Concomitant]
     Active Substance: CHOLECALCIFEROL
     Route: 048
     Dates: start: 20220317
  17. OMEGA 3 [Concomitant]
     Active Substance: CAPSAICIN
     Route: 048
     Dates: start: 20220317
  18. AMMONIUM LACTATE [Concomitant]
     Active Substance: AMMONIUM LACTATE
     Route: 061
     Dates: start: 20220503
  19. ADVIL [Concomitant]
     Active Substance: IBUPROFEN
     Indication: Muscle spasms
     Route: 048
     Dates: start: 20220317, end: 20220317
  20. FAMOTIDINE [Concomitant]
     Active Substance: FAMOTIDINE
     Indication: Gastrooesophageal reflux disease
     Route: 042
     Dates: start: 20220630, end: 20220708
  21. MAGNESIUM HYDROXIDE [Concomitant]
     Active Substance: MAGNESIUM HYDROXIDE
     Indication: Gastrooesophageal reflux disease
     Route: 048
     Dates: start: 20220630, end: 20220715
  22. OXYCODONE HYDROCHLORIDE [Concomitant]
     Active Substance: OXYCODONE HYDROCHLORIDE
     Indication: Pain
     Route: 048
     Dates: start: 20220701, end: 20220706
  23. LORAZEPAM [Concomitant]
     Active Substance: LORAZEPAM
     Indication: Muscle spasms
     Route: 042
     Dates: start: 20220701, end: 20220703
  24. TYLENOL [Concomitant]
     Active Substance: ACETAMINOPHEN
     Indication: Pain
     Route: 048
     Dates: start: 20220708

REACTIONS (4)
  - Dehydration [Recovered/Resolved]
  - Hypokalaemia [Recovered/Resolved]
  - Vomiting [Not Recovered/Not Resolved]
  - Diarrhoea [Not Recovered/Not Resolved]

NARRATIVE: CASE EVENT DATE: 20220630
